FAERS Safety Report 15218746 (Version 1)
Quarter: 2018Q3

REPORT INFORMATION
  Report Type: Spontaneous
  Country: US (occurrence: US)
  Receive Date: 20180731
  Receipt Date: 20180731
  Transmission Date: 20181010
  Serious: Yes (Hospitalization)
  Sender: FDA-Public Use
  Company Number: US-ROCHE-2160180

PATIENT
  Age: 55 Year
  Sex: Female

DRUGS (4)
  1. OCREVUS [Suspect]
     Active Substance: OCRELIZUMAB
     Indication: RELAPSING MULTIPLE SCLEROSIS
     Route: 065
     Dates: start: 201704
  2. BACLOFEN. [Concomitant]
     Active Substance: BACLOFEN
  3. OCREVUS [Suspect]
     Active Substance: OCRELIZUMAB
     Dosage: THIRD INFUSION
     Route: 065
     Dates: start: 20180531
  4. NEURONTIN [Concomitant]
     Active Substance: GABAPENTIN

REACTIONS (3)
  - Hallucination [Unknown]
  - Acute kidney injury [Unknown]
  - Lymphopenia [Unknown]

NARRATIVE: CASE EVENT DATE: 20180704
